FAERS Safety Report 5808323-6 (Version None)
Quarter: 2008Q3

REPORT INFORMATION
  Report Type: 
  Country: None (occurrence: None)
  Receive Date: 20080709
  Receipt Date: 20080605
  Transmission Date: 20090109
  Serious: Yes (Other)
  Sender: FDA-Public Use
  Company Number: CHNY2008IE01827

PATIENT
  Age: 74 Year
  Sex: Male

DRUGS (1)
  1. SCOPOLAMINE [Suspect]
     Indication: SALIVARY HYPERSECRETION
     Dosage: 1 DF, Q72H, TRANSDERMAL; 2 DF Q72H, TRANSDERMAL
     Route: 062

REACTIONS (2)
  - CONCOMITANT DISEASE PROGRESSION [None]
  - OFF LABEL USE [None]
